FAERS Safety Report 17270427 (Version 1)
Quarter: 2020Q1

REPORT INFORMATION
  Report Type: Spontaneous
  Country: BR (occurrence: BR)
  Receive Date: 20200114
  Receipt Date: 20200114
  Transmission Date: 20200409
  Serious: Yes (Other)
  Sender: FDA-Public Use
  Company Number: BR-INSUD PHARMA-1912BR00188

PATIENT

DRUGS (1)
  1. NUVESSA [Suspect]
     Active Substance: METRONIDAZOLE
     Indication: PRODUCT USED FOR UNKNOWN INDICATION
     Dosage: UNK
     Route: 061

REACTIONS (4)
  - Pyoderma [Recovered/Resolved]
  - Skin necrosis [Recovered/Resolved]
  - Folliculitis [Recovered/Resolved]
  - Hypersensitivity [Recovered/Resolved]
